FAERS Safety Report 21552305 (Version 1)
Quarter: 2022Q4

REPORT INFORMATION
  Report Type: Spontaneous
  Country: US (occurrence: US)
  Receive Date: 20221104
  Receipt Date: 20221104
  Transmission Date: 20230112
  Serious: Yes (Other)
  Sender: FDA-Public Use
  Company Number: US-MLMSERVICE-20221019-3870700-1

PATIENT
  Age: 1 Year
  Sex: Female

DRUGS (3)
  1. SILDENAFIL [Suspect]
     Active Substance: SILDENAFIL
     Indication: Newborn persistent pulmonary hypertension
     Dosage: UNK
     Route: 065
  2. BOSENTAN [Concomitant]
     Active Substance: BOSENTAN
     Indication: Newborn persistent pulmonary hypertension
     Dosage: UNK
     Route: 065
  3. OXYGEN [Concomitant]
     Active Substance: OXYGEN
     Indication: Oxygen therapy
     Dosage: UNK
     Route: 065

REACTIONS (1)
  - Gastrooesophageal reflux disease [Unknown]
